FAERS Safety Report 15000802 (Version 1)
Quarter: 2018Q2

REPORT INFORMATION
  Report Type: Spontaneous
  Country: CA (occurrence: CA)
  Receive Date: 20180612
  Receipt Date: 20180612
  Transmission Date: 20180711
  Serious: Yes (Other)
  Sender: FDA-Public Use
  Company Number: CA-TEVA-2018-CA-902749

PATIENT
  Age: 55 Year
  Sex: Male

DRUGS (1)
  1. NOVO-CIPROFLOXACIN [Suspect]
     Active Substance: CIPROFLOXACIN
     Indication: POUCHITIS
     Route: 048

REACTIONS (7)
  - Tendonitis [Recovered/Resolved]
  - Myopathy [Recovered/Resolved]
  - Neuropathy peripheral [Recovered/Resolved]
  - Arthritis [Recovered/Resolved]
  - Anxiety [Recovered/Resolved]
  - Asthenia [Recovered/Resolved]
  - Insomnia [Recovered/Resolved]
